FAERS Safety Report 13233683 (Version 2)
Quarter: 2017Q1

REPORT INFORMATION
  Report Type: Report from Study
  Country: JP (occurrence: JP)
  Receive Date: 20170215
  Receipt Date: 20170315
  Transmission Date: 20170428
  Serious: Yes (Hospitalization)
  Sender: FDA-Public Use
  Company Number: JP-ROCHE-1893370

PATIENT
  Age: 8 Year
  Sex: Male

DRUGS (14)
  1. CALONAL [Concomitant]
     Active Substance: ACETAMINOPHEN
     Route: 048
     Dates: start: 20160204, end: 20160204
  2. CALONAL [Concomitant]
     Active Substance: ACETAMINOPHEN
     Route: 048
     Dates: start: 20160909, end: 20160909
  3. PREDONINE [Concomitant]
     Active Substance: PREDNISOLONE
     Indication: NEPHROTIC SYNDROME
     Route: 065
     Dates: end: 20160310
  4. METHYLPREDNISOLONE. [Concomitant]
     Active Substance: METHYLPREDNISOLONE
     Dosage: PREMEDICATION
     Route: 042
     Dates: start: 20160909, end: 20160909
  5. NEORAL [Concomitant]
     Active Substance: CYCLOSPORINE
     Indication: NEPHROTIC SYNDROME
  6. BREDININ [Concomitant]
     Active Substance: MIZORIBINE
     Indication: NEPHROTIC SYNDROME
     Route: 048
  7. RITUXIMAB [Suspect]
     Active Substance: RITUXIMAB
     Indication: NEPHROTIC SYNDROME
     Route: 042
     Dates: start: 20160204, end: 20160204
  8. RITUXIMAB [Suspect]
     Active Substance: RITUXIMAB
     Route: 042
     Dates: start: 20160909, end: 20160909
  9. POLARAMINE [Concomitant]
     Active Substance: DEXCHLORPHENIRAMINE MALEATE
     Dosage: PREMEDICATION,
     Route: 048
     Dates: start: 20160204, end: 20160204
  10. METHYLPREDNISOLONE. [Concomitant]
     Active Substance: METHYLPREDNISOLONE
     Dosage: PREMEDICATION
     Route: 042
     Dates: start: 20160204, end: 20160204
  11. POLARAMINE [Concomitant]
     Active Substance: DEXCHLORPHENIRAMINE MALEATE
     Dosage: PREMEDICATION,
     Route: 048
     Dates: start: 20160909, end: 20160909
  12. CICLOSPORIN [Suspect]
     Active Substance: CYCLOSPORINE
     Indication: NEPHROTIC SYNDROME
     Route: 048
  13. MIZORIBINE [Suspect]
     Active Substance: MIZORIBINE
     Indication: NEPHROTIC SYNDROME
     Route: 048
  14. BAKTAR [Concomitant]
     Active Substance: SULFAMETHOXAZOLE\TRIMETHOPRIM
     Indication: PROPHYLAXIS
     Route: 048
     Dates: start: 20160203

REACTIONS (3)
  - Influenza [Recovered/Resolved]
  - Febrile neutropenia [Recovered/Resolved]
  - Conjunctivitis allergic [Recovered/Resolved]

NARRATIVE: CASE EVENT DATE: 20160308
